FAERS Safety Report 21515205 (Version 1)
Quarter: 2022Q4

REPORT INFORMATION
  Report Type: Spontaneous
  Country: US (occurrence: US)
  Receive Date: 20221027
  Receipt Date: 20221027
  Transmission Date: 20230113
  Serious: No
  Sender: FDA-Public Use
  Company Number: US-PFIZER INC-202201257759

PATIENT
  Age: 70 Year

DRUGS (1)
  1. DOXYCYCLINE CALCIUM [Suspect]
     Active Substance: DOXYCYCLINE CALCIUM
     Dosage: UNK

REACTIONS (5)
  - Decreased appetite [Unknown]
  - Drug hypersensitivity [Unknown]
  - Fatigue [Unknown]
  - Malaise [Unknown]
  - Lethargy [Unknown]
